FAERS Safety Report 9770599 (Version 2)
Quarter: 2014Q1

REPORT INFORMATION
  Report Type: Spontaneous
  Country: US (occurrence: US)
  Receive Date: 20131218
  Receipt Date: 20140130
  Transmission Date: 20141002
  Serious: No
  Sender: FDA-Public Use
  Company Number: US-PFIZER INC-2013363343

PATIENT
  Age: 60 Year
  Sex: Female
  Weight: 60 kg

DRUGS (4)
  1. CHANTIX [Suspect]
     Indication: SMOKING CESSATION THERAPY
     Dosage: 0.5 MG, 1X/DAY
     Route: 048
     Dates: start: 201311, end: 201311
  2. CHANTIX [Suspect]
     Dosage: UNK
     Route: 048
     Dates: start: 201311
  3. BENICAR HCT [Concomitant]
     Indication: HYPERTENSION
     Dosage: 20 MG OLMESARTAN/12 MG HYDROCHLOROTHIAZIDE, UNK
  4. SYNTHROID [Concomitant]
     Indication: HYPOTHYROIDISM
     Dosage: 75 UG, UNK

REACTIONS (3)
  - Headache [Not Recovered/Not Resolved]
  - Nocturia [Not Recovered/Not Resolved]
  - Back pain [Not Recovered/Not Resolved]
